FAERS Safety Report 8086712-X (Version None)
Quarter: 2012Q1

REPORT INFORMATION
  Report Type: 
  Country: None (occurrence: None)
  Receive Date: 20120128
  Receipt Date: 20110610
  Transmission Date: 20120608
  Serious: No
  Sender: FDA-Public Use
  Company Number: US-ABBOTT-11P-163-0731866-00

PATIENT
  Sex: Male
  Weight: 79.904 kg

DRUGS (4)
  1. HUMIRA [Suspect]
     Indication: CROHN'S DISEASE
     Route: 058
     Dates: start: 20080101
  2. VICODIN [Concomitant]
     Indication: PAIN
  3. AZOTHIAPRINE [Concomitant]
     Indication: CROHN'S DISEASE
  4. FOLIC ACID [Concomitant]
     Indication: VITAMIN SUPPLEMENTATION

REACTIONS (2)
  - HIDRADENITIS [None]
  - SKIN INFECTION [None]
